FAERS Safety Report 9763559 (Version 2)
Quarter: 2013Q4

REPORT INFORMATION
  Report Type: Spontaneous
  Country: US (occurrence: US)
  Receive Date: 20131216
  Receipt Date: 20131216
  Transmission Date: 20140711
  Serious: Yes (Hospitalization, Other)
  Sender: FDA-Public Use
  Company Number: US-RB-060771-13

PATIENT
  Age: 40 Year
  Sex: Female

DRUGS (3)
  1. SUBOXONE FILM [Suspect]
     Indication: DRUG DEPENDENCE
     Dosage: SUBOXONE FILM; CUTTING IN HALF, TAKING VARIOUS DOSES.
     Route: 060
     Dates: start: 201307, end: 201311
  2. VARIOUS BENZODIAZEPINES [Suspect]
     Indication: SUBSTANCE USE
     Dosage: VARIOUS DOSES.
     Route: 060
     Dates: start: 2009, end: 201311
  3. KLONOPIN [Suspect]
     Indication: CONVULSION
     Route: 048
     Dates: start: 2000, end: 201311

REACTIONS (7)
  - Substance abuse [Recovered/Resolved]
  - Wrong technique in drug usage process [Recovered/Resolved]
  - Drug dependence [Not Recovered/Not Resolved]
  - Therapeutic response unexpected [Recovered/Resolved]
  - Drug detoxification [Recovered/Resolved]
  - Convulsion [Recovered/Resolved]
  - Drug withdrawal syndrome [Unknown]
